FAERS Safety Report 16776491 (Version 1)
Quarter: 2019Q3

REPORT INFORMATION
  Report Type: Spontaneous
  Country: US (occurrence: US)
  Receive Date: 20190905
  Receipt Date: 20190905
  Transmission Date: 20191005
  Serious: No
  Sender: FDA-Public Use
  Company Number: US-IPSEN BIOPHARMACEUTICALS, INC.-2019-15537

PATIENT
  Age: 58 Year
  Sex: Female

DRUGS (2)
  1. RESTYLANE DEFYNE [Suspect]
     Active Substance: HYALURONIC ACID\LIDOCAINE
     Indication: SKIN COSMETIC PROCEDURE
     Dosage: 0.25 ML IN FOUR DIFFERENT AREAS AROUND THE MOUTH WITH A TOTAL OF 1 ML
     Dates: start: 20190703, end: 20190703
  2. DYSPORT [Suspect]
     Active Substance: ABOBOTULINUMTOXINA
     Indication: SKIN WRINKLING
     Dosage: 50 IU (GLABELLA)
     Route: 065
     Dates: start: 20190703, end: 20190703

REACTIONS (7)
  - Nodule [Recovered/Resolved]
  - Contusion [Unknown]
  - Swelling [Recovering/Resolving]
  - Heart rate increased [Unknown]
  - Dyspnoea [Unknown]
  - Pain [Recovering/Resolving]
  - Arthropod bite [Unknown]

NARRATIVE: CASE EVENT DATE: 201908
